FAERS Safety Report 8247743-X (Version None)
Quarter: 2012Q1

REPORT INFORMATION
  Report Type: 
  Country: None (occurrence: None)
  Receive Date: 20120330
  Receipt Date: 20120322
  Transmission Date: 20120608
  Serious: Yes (Hospitalization)
  Sender: FDA-Public Use
  Company Number: GB-GLAXOSMITHKLINE-B0706134B

PATIENT
  Sex: Female
  Weight: 57 kg

DRUGS (3)
  1. LAPATINIB [Suspect]
     Indication: BREAST CANCER METASTATIC
     Route: 048
     Dates: start: 20110119, end: 20120224
  2. AMOXICILLIN [Concomitant]
     Indication: TOOTH EXTRACTION
     Route: 065
     Dates: start: 20120313
  3. PACLITAXEL [Suspect]
     Indication: BREAST CANCER METASTATIC
     Dosage: 136MG WEEKLY
     Route: 042
     Dates: start: 20110119, end: 20110621

REACTIONS (2)
  - HYPOKALAEMIA [None]
  - HYPERCALCAEMIA [None]
